FAERS Safety Report 6226728-9 (Version None)
Quarter: 2009Q2

REPORT INFORMATION
  Report Type: 
  Country: None (occurrence: None)
  Receive Date: 20090612
  Receipt Date: 20090604
  Transmission Date: 20091009
  Serious: Yes (Other)
  Sender: FDA-Public Use
  Company Number: BR-ROCHE-583874

PATIENT
  Age: 37 Year
  Sex: Female
  Weight: 62 kg

DRUGS (1)
  1. ROACUTAN [Suspect]
     Indication: ACNE
     Route: 048
     Dates: start: 20080601, end: 20080828

REACTIONS (1)
  - ABORTION SPONTANEOUS [None]
